FAERS Safety Report 24995297 (Version 1)
Quarter: 2025Q1

REPORT INFORMATION
  Report Type: Spontaneous
  Country: US (occurrence: None)
  Receive Date: 20250221
  Receipt Date: 20250221
  Transmission Date: 20250408
  Serious: Yes (Other)
  Sender: FDA-CTU
  Company Number: None

PATIENT
  Age: 74 Year
  Sex: Male
  Weight: 64 kg

DRUGS (3)
  1. GAMUNEX-C [Suspect]
     Active Substance: HUMAN IMMUNOGLOBULIN G
     Indication: Polyneuropathy
     Route: 042
     Dates: start: 20240725, end: 20250218
  2. GAMUNEX-C [Suspect]
     Active Substance: HUMAN IMMUNOGLOBULIN G
     Indication: Polyneuropathy
     Route: 042
     Dates: start: 20240725, end: 20250218
  3. EPINEPHRINE [Suspect]
     Active Substance: EPINEPHRINE

REACTIONS (5)
  - Injection site erythema [None]
  - Pruritus [None]
  - Urticaria [None]
  - Swelling face [None]
  - Blood pressure increased [None]

NARRATIVE: CASE EVENT DATE: 20250218
